FAERS Safety Report 5398993-1 (Version None)
Quarter: 2007Q3

REPORT INFORMATION
  Report Type: 
  Country: None (occurrence: None)
  Receive Date: 20070727
  Receipt Date: 20070724
  Transmission Date: 20080115
  Serious: Yes (Other)
  Sender: FDA-Public Use
  Company Number: US-BRISTOL-MYERS SQUIBB COMPANY-13778154

PATIENT
  Age: 91 Year
  Sex: Female

DRUGS (2)
  1. BUSPAR [Suspect]
     Dates: start: 20041201
  2. TEQUIN [Suspect]

REACTIONS (2)
  - ACUTE RESPIRATORY FAILURE [None]
  - CHOKING [None]
